FAERS Safety Report 16669020 (Version 1)
Quarter: 2019Q3

REPORT INFORMATION
  Report Type: Spontaneous
  Country: US (occurrence: US)
  Receive Date: 20190805
  Receipt Date: 20190805
  Transmission Date: 20191004
  Serious: No
  Sender: FDA-Public Use
  Company Number: US-VELOXIS PHARMACEUTICALS, INC.-2019VELUS1452

PATIENT
  Sex: Female

DRUGS (6)
  1. TACROLIMUS. [Concomitant]
     Active Substance: TACROLIMUS
     Indication: LIVER TRANSPLANT
     Dosage: UNK
  2. PROGRAF [Concomitant]
     Active Substance: TACROLIMUS\TACROLIMUS ANHYDROUS
     Indication: LIVER TRANSPLANT
     Dosage: 1.5MG IN THE MORNING, 1MG IN THE EVENING
  3. ENVARSUS XR [Suspect]
     Active Substance: TACROLIMUS
     Indication: LIVER TRANSPLANT
     Dosage: 1 MG, UNK
     Route: 065
  4. ENVARSUS XR [Suspect]
     Active Substance: TACROLIMUS
     Dosage: 4 MG, UNK
     Route: 065
  5. ENVARSUS XR [Suspect]
     Active Substance: TACROLIMUS
     Dosage: 2 MG, UNK
     Route: 065
  6. ENVARSUS XR [Suspect]
     Active Substance: TACROLIMUS
     Dosage: 6 MG, UNK
     Route: 065

REACTIONS (4)
  - Immunosuppressant drug level decreased [Unknown]
  - Intentional product use issue [Unknown]
  - Drug ineffective [Unknown]
  - Hepatic enzyme increased [Not Recovered/Not Resolved]
